FAERS Safety Report 10080252 (Version 1)
Quarter: 2014Q2

REPORT INFORMATION
  Report Type: Spontaneous
  Country: US (occurrence: US)
  Receive Date: 20140415
  Receipt Date: 20140415
  Transmission Date: 20141212
  Serious: No
  Sender: FDA-Public Use
  Company Number: US-B.I. PHARMACEUTICALS,INC./RIDGEFIELD-2014-BI-15485BP

PATIENT
  Sex: Female
  Weight: 82 kg

DRUGS (8)
  1. SPIRIVA [Suspect]
     Indication: CHRONIC OBSTRUCTIVE PULMONARY DISEASE
     Dosage: 18 MCG
     Route: 055
     Dates: start: 201304, end: 201404
  2. XOPENEX [Concomitant]
     Indication: CHRONIC OBSTRUCTIVE PULMONARY DISEASE
     Dosage: FORMULATION: INHALATION AEROSOL.
     Route: 055
  3. LASIX [Concomitant]
     Indication: FLUID RETENTION
     Route: 048
     Dates: start: 2010
  4. POTASSIUM [Concomitant]
     Indication: SUPPLEMENTATION THERAPY
     Dosage: 20 MEQ
     Route: 048
     Dates: start: 2010
  5. LOSARTAN [Concomitant]
     Indication: HYPERTENSION
     Dosage: 50 MG
     Route: 048
     Dates: start: 2013
  6. PRADAXA [Concomitant]
     Indication: ATRIAL FIBRILLATION
     Dosage: 300 MG
     Route: 048
     Dates: start: 2010
  7. SPIRONALACTONE [Concomitant]
     Indication: FLUID RETENTION
     Dosage: 25 MG
     Route: 048
     Dates: start: 2010
  8. MAGNESIUM [Concomitant]
     Indication: SUPPLEMENTATION THERAPY
     Dosage: 400 MG
     Route: 048
     Dates: start: 2011

REACTIONS (2)
  - Dyspnoea [Recovered/Resolved]
  - Pruritus [Recovered/Resolved]
